FAERS Safety Report 12377854 (Version 1)
Quarter: 2016Q2

REPORT INFORMATION
  Report Type: Report from Study
  Country: US (occurrence: US)
  Receive Date: 20160517
  Receipt Date: 20160517
  Transmission Date: 20160815
  Serious: No
  Sender: FDA-Public Use
  Company Number: US-MALLINCKRODT-T201600290

PATIENT
  Age: 70 Year
  Sex: Male

DRUGS (2)
  1. REPOSITORY CORTICOTROPIN INJECTION [Suspect]
     Active Substance: CORTICOTROPIN
     Indication: SARCOIDOSIS
     Dosage: 80 UNITS EVERY 72 HOURS
     Route: 058
     Dates: start: 20151018, end: 20160111
  2. REPOSITORY CORTICOTROPIN INJECTION [Suspect]
     Active Substance: CORTICOTROPIN
     Dosage: UNKNOWN DOSE/FREQUENCY
     Route: 058

REACTIONS (4)
  - Drug dose omission [Not Recovered/Not Resolved]
  - Asthenia [Not Recovered/Not Resolved]
  - Malaise [Not Recovered/Not Resolved]
  - Dyspnoea [Not Recovered/Not Resolved]

NARRATIVE: CASE EVENT DATE: 201601
